FAERS Safety Report 10549614 (Version 2)
Quarter: 2015Q1

REPORT INFORMATION
  Report Type: Spontaneous
  Country: JP (occurrence: JP)
  Receive Date: 20141028
  Receipt Date: 20150326
  Transmission Date: 20150720
  Serious: Yes (Hospitalization)
  Sender: FDA-Public Use
  Company Number: JP-EISAI MEDICAL RESEARCH-EC-2014-001222

PATIENT
  Age: 70 Year
  Sex: Female
  Weight: 50 kg

DRUGS (6)
  1. FLUITRAN [Concomitant]
     Active Substance: TRICHLORMETHIAZIDE
     Indication: HYPERTENSION
     Route: 048
     Dates: end: 20141007
  2. ADALAT CC [Concomitant]
     Active Substance: NIFEDIPINE
     Indication: HYPERTENSION
     Route: 048
     Dates: end: 20141007
  3. OVULANZE [Concomitant]
     Active Substance: OMEPRAZOLE
     Indication: HYPERTENSION
     Route: 048
     Dates: end: 20141007
  4. SELARA [Concomitant]
     Active Substance: EPLERENONE
     Indication: HYPERTENSION
     Route: 048
     Dates: end: 20141007
  5. RABECURE [Suspect]
     Active Substance: RABEPRAZOLE SODIUM
     Indication: HELICOBACTER INFECTION
     Route: 048
     Dates: start: 20141006, end: 20141007
  6. BLOPRESS [Concomitant]
     Active Substance: CANDESARTAN CILEXETIL
     Indication: HYPERTENSION
     Route: 048
     Dates: end: 20141007

REACTIONS (1)
  - Ileus [Recovered/Resolved]

NARRATIVE: CASE EVENT DATE: 20141007
